FAERS Safety Report 10241436 (Version 2)
Quarter: 2014Q3

REPORT INFORMATION
  Report Type: Spontaneous
  Country: US (occurrence: US)
  Receive Date: 20140617
  Receipt Date: 20140718
  Transmission Date: 20150326
  Serious: Yes (Hospitalization)
  Sender: FDA-Public Use
  Company Number: US-BAYER-2014-089406

PATIENT
  Age: 39 Year
  Sex: Female
  Weight: 113.83 kg

DRUGS (8)
  1. YASMIN [Suspect]
     Active Substance: DROSPIRENONE\ETHINYL ESTRADIOL
     Indication: CONTRACEPTION
     Dosage: UNK
     Dates: start: 200309, end: 20040415
  2. PERCOCET [Concomitant]
     Active Substance: ACETAMINOPHEN\OXYCODONE HYDROCHLORIDE
  3. WELLBUTRIN [Concomitant]
     Active Substance: BUPROPION HYDROCHLORIDE
  4. SEROQUEL [Concomitant]
     Active Substance: QUETIAPINE FUMARATE
  5. LAMICTAL [Concomitant]
     Active Substance: LAMOTRIGINE
  6. YAZ [Suspect]
     Active Substance: DROSPIRENONE\ETHINYL ESTRADIOL
     Dosage: UNK
  7. TOPAMAX [Concomitant]
     Active Substance: TOPIRAMATE
  8. BACITRACIN. [Concomitant]
     Active Substance: BACITRACIN

REACTIONS (8)
  - Emotional distress [None]
  - Pain [None]
  - Anxiety [None]
  - Deep vein thrombosis [None]
  - General physical health deterioration [None]
  - Pulmonary embolism [None]
  - Injury [None]
  - Cholelithiasis [None]

NARRATIVE: CASE EVENT DATE: 2004
